FAERS Safety Report 8258003-5 (Version None)
Quarter: 2012Q2

REPORT INFORMATION
  Report Type: 
  Country: None (occurrence: None)
  Receive Date: 20120404
  Receipt Date: 20120326
  Transmission Date: 20120825
  Serious: Yes (Hospitalization)
  Sender: FDA-Public Use
  Company Number: US-BAYER-2011-116734

PATIENT
  Age: 39 Year
  Sex: Female
  Weight: 95.238 kg

DRUGS (10)
  1. METFORMIN HCL [Concomitant]
     Dosage: 500 MG, QD
     Route: 048
  2. BCP [Concomitant]
     Dosage: UNK UNK, QD
     Route: 048
  3. YAZ [Suspect]
     Dosage: UNK
     Dates: start: 20050215, end: 20060901
  4. CYTOMEL [Concomitant]
     Dosage: 25 MCG/24HR, BID
     Route: 048
  5. YASMIN [Suspect]
     Dosage: UNK
     Dates: start: 20050215, end: 20060930
  6. LEVOXYL [Concomitant]
     Dosage: 25 MCG/24HR, QD
     Route: 048
  7. LEXAPRO [Concomitant]
     Dosage: 20 MG, QD
     Route: 048
  8. SPIRONOLACTONE [Concomitant]
     Dosage: 50 MG, QD
     Route: 048
  9. PHENTERMINE [Concomitant]
     Dosage: 30 MG, QD
     Route: 048
  10. BUSPAR [Concomitant]
     Dosage: 5 MG, TID
     Route: 048

REACTIONS (7)
  - OEDEMA PERIPHERAL [None]
  - ANXIETY [None]
  - PAIN IN EXTREMITY [None]
  - DEEP VEIN THROMBOSIS [None]
  - EMOTIONAL DISTRESS [None]
  - ANHEDONIA [None]
  - GENERAL PHYSICAL HEALTH DETERIORATION [None]
